FAERS Safety Report 14948340 (Version 1)
Quarter: 2018Q2

REPORT INFORMATION
  Report Type: Spontaneous
  Country: US (occurrence: US)
  Receive Date: 20180508
  Receipt Date: 20180508
  Transmission Date: 20180711
  Serious: Yes (Hospitalization)
  Sender: FDA-Public Use
  Company Number: None

PATIENT
  Age: 64 Year
  Sex: Male

DRUGS (14)
  1. ORENCIA [Suspect]
     Active Substance: ABATACEPT
     Indication: RHEUMATOID ARTHRITIS
     Route: 058
     Dates: start: 20171228
  2. ELIQUIS [Concomitant]
     Active Substance: APIXABAN
  3. BUMETANIDE. [Concomitant]
     Active Substance: BUMETANIDE
  4. RANITIDINE. [Concomitant]
     Active Substance: RANITIDINE
  5. HUMALOG [Concomitant]
     Active Substance: INSULIN LISPRO
  6. MONTELUKAST [Concomitant]
     Active Substance: MONTELUKAST SODIUM
  7. KETOCONAZOLE. [Concomitant]
     Active Substance: KETOCONAZOLE
  8. CLINDAMYCIN. [Concomitant]
     Active Substance: CLINDAMYCIN
  9. AMOXICILLIN. [Concomitant]
     Active Substance: AMOXICILLIN
  10. DULOXETINE. [Concomitant]
     Active Substance: DULOXETINE
  11. GABAPENTIN. [Concomitant]
     Active Substance: GABAPENTIN
  12. DOXYCYCLINE. [Concomitant]
     Active Substance: DOXYCYCLINE
  13. METHOCARBAMOL. [Concomitant]
     Active Substance: METHOCARBAMOL
  14. LISINOPRIL. [Concomitant]
     Active Substance: LISINOPRIL

REACTIONS (3)
  - Joint stiffness [None]
  - Colitis ischaemic [None]
  - Therapy cessation [None]

NARRATIVE: CASE EVENT DATE: 2018
